FAERS Safety Report 9253823 (Version 2)
Quarter: 2013Q2

REPORT INFORMATION
  Report Type: Spontaneous
  Country: AU (occurrence: AU)
  Receive Date: 20130425
  Receipt Date: 20130502
  Transmission Date: 20140414
  Serious: Yes (Other)
  Sender: FDA-Public Use
  Company Number: AU-ACCORD-017348

PATIENT
  Age: 59 Year
  Sex: Female

DRUGS (1)
  1. MITOMYCIN [Suspect]
     Indication: TRABECULECTOMY

REACTIONS (2)
  - Malignant melanoma [Recovered/Resolved]
  - Off label use [Unknown]
